FAERS Safety Report 23959941 (Version 1)
Quarter: 2024Q2

REPORT INFORMATION
  Report Type: Spontaneous
  Country: JP (occurrence: JP)
  Receive Date: 20240611
  Receipt Date: 20240611
  Transmission Date: 20240716
  Serious: Yes (Death)
  Sender: FDA-Public Use
  Company Number: JP-JNJFOC-20240624974

PATIENT
  Age: 7 Decade

DRUGS (7)
  1. PALIPERIDONE PALMITATE [Suspect]
     Active Substance: PALIPERIDONE PALMITATE
     Indication: Schizophrenia
     Route: 030
  2. PALIPERIDONE PALMITATE [Suspect]
     Active Substance: PALIPERIDONE PALMITATE
  3. PALIPERIDONE PALMITATE [Suspect]
     Active Substance: PALIPERIDONE PALMITATE
  4. HALOPERIDOL [Suspect]
     Active Substance: HALOPERIDOL
     Indication: Schizophrenia
     Dosage: DOSE UNKNOWN
     Route: 048
  5. DEPAKENE [Suspect]
     Active Substance: VALPROIC ACID
     Indication: Schizophrenia
     Dosage: DOSE UNKNOWN
     Route: 048
  6. LEXAPRO [Suspect]
     Active Substance: ESCITALOPRAM OXALATE
     Indication: Schizophrenia
     Dosage: DOSE UNKNOWN
     Route: 048
  7. DAYVIGO [Suspect]
     Active Substance: LEMBOREXANT
     Indication: Schizophrenia
     Dosage: DOSE UNKNOWN
     Route: 048

REACTIONS (1)
  - Arrhythmia [Fatal]
